FAERS Safety Report 8219700-0 (Version None)
Quarter: 2012Q1

REPORT INFORMATION
  Report Type: 
  Country: None (occurrence: None)
  Receive Date: 20120319
  Receipt Date: 20120309
  Transmission Date: 20120608
  Serious: Yes (Other)
  Sender: FDA-Public Use
  Company Number: JP-ROCHE-1037186

PATIENT
  Sex: Male
  Weight: 58 kg

DRUGS (5)
  1. VISUDYNE [Concomitant]
     Dates: start: 20090201, end: 20090501
  2. RANIBIZUMAB [Suspect]
     Route: 050
     Dates: start: 20091120
  3. LEVOFLOXACIN [Concomitant]
     Dates: start: 20090701, end: 20091101
  4. RANIBIZUMAB [Suspect]
     Route: 050
     Dates: start: 20090821
  5. RANIBIZUMAB [Suspect]
     Indication: AGE-RELATED MACULAR DEGENERATION
     Route: 050
     Dates: start: 20090723

REACTIONS (1)
  - RETINAL PIGMENT EPITHELIAL TEAR [None]
